FAERS Safety Report 9782279 (Version 2)
Quarter: 2014Q1

REPORT INFORMATION
  Report Type: Report from Study
  Country: CA (occurrence: CA)
  Receive Date: 20131226
  Receipt Date: 20140212
  Transmission Date: 20141002
  Serious: Yes (Hospitalization)
  Sender: FDA-Public Use
  Company Number: CA-JNJFOC-20131213827

PATIENT
  Age: 35 Year
  Sex: Male
  Weight: 108 kg

DRUGS (6)
  1. REMICADE [Suspect]
     Indication: CROHN^S DISEASE
     Route: 042
     Dates: start: 201008
  2. IMURAN [Concomitant]
     Route: 048
  3. OXEPAM [Concomitant]
     Route: 065
  4. CARBAPENTIN [Concomitant]
     Route: 065
  5. ATIVAN [Concomitant]
     Route: 065
  6. DILAUDID [Concomitant]
     Route: 065

REACTIONS (3)
  - Gastrointestinal obstruction [Unknown]
  - Fistula [Recovering/Resolving]
  - Abscess [Recovering/Resolving]
